FAERS Safety Report 21344550 (Version 1)
Quarter: 2022Q3

REPORT INFORMATION
  Report Type: Spontaneous
  Country: US (occurrence: US)
  Receive Date: 20220916
  Receipt Date: 20220916
  Transmission Date: 20221026
  Serious: No
  Sender: FDA-Public Use
  Company Number: US-NOVEN PHARMACEUTICALS, INC.-2021-NOV-US003665

PATIENT
  Sex: Female
  Weight: 53.515 kg

DRUGS (2)
  1. COMBIPATCH [Suspect]
     Active Substance: ESTRADIOL\NORETHINDRONE ACETATE
     Indication: Menopause
     Dosage: 0.05/0.14MG, UNK
     Route: 062
     Dates: end: 202108
  2. COMBIPATCH [Suspect]
     Active Substance: ESTRADIOL\NORETHINDRONE ACETATE
     Dosage: 0.05/0.14MG, UNK
     Route: 062

REACTIONS (8)
  - Irritability [Recovered/Resolved]
  - Mood swings [Not Recovered/Not Resolved]
  - Intermenstrual bleeding [Unknown]
  - Breast pain [Unknown]
  - Breast swelling [Unknown]
  - Muscle spasms [Unknown]
  - Product adhesion issue [Recovered/Resolved]
  - Adhesive tape use [Recovered/Resolved]

NARRATIVE: CASE EVENT DATE: 20210101
